FAERS Safety Report 6672350-X (Version None)
Quarter: 2010Q2

REPORT INFORMATION
  Report Type: 
  Country: None (occurrence: None)
  Receive Date: 20100408
  Receipt Date: 20100325
  Transmission Date: 20101027
  Serious: Yes (Death)
  Sender: FDA-Public Use
  Company Number: GB-JNJFOC-20100401220

PATIENT
  Age: 14 Year
  Sex: Male

DRUGS (2)
  1. FENTANYL-100 [Suspect]
     Indication: PROCEDURAL PAIN
     Route: 062
  2. OXYCODONE [Suspect]
     Indication: PROCEDURAL PAIN
     Route: 065

REACTIONS (2)
  - DRUG TOXICITY [None]
  - POSTOPERATIVE ANALGESIA [None]
